FAERS Safety Report 5358012-X (Version None)
Quarter: 2007Q2

REPORT INFORMATION
  Report Type: 
  Country: None (occurrence: None)
  Receive Date: 20070530
  Receipt Date: 20061201
  Transmission Date: 20071010
  Serious: Yes (Other)
  Sender: FDA-Public Use
  Company Number: US200612000602

PATIENT

DRUGS (1)
  1. ZYPREXA [Suspect]
     Dosage: 15 MG

REACTIONS (1)
  - SYNCOPE [None]
